FAERS Safety Report 11024768 (Version 4)
Quarter: 2015Q3

REPORT INFORMATION
  Report Type: Report from Study
  Country: JP (occurrence: JP)
  Receive Date: 20150414
  Receipt Date: 20150908
  Transmission Date: 20151125
  Serious: Yes (Other)
  Sender: FDA-Public Use
  Company Number: JP-ASTELLAS-2011JP007221

PATIENT
  Age: 32 Year
  Sex: Male

DRUGS (39)
  1. APLACE [Concomitant]
     Active Substance: TROXIPIDE
     Indication: PROPHYLAXIS
     Route: 048
     Dates: end: 20121216
  2. APLACE [Concomitant]
     Active Substance: TROXIPIDE
     Route: 048
     Dates: start: 20121217, end: 20131002
  3. TACROLIMUS. [Suspect]
     Active Substance: TACROLIMUS
     Indication: LUPUS NEPHRITIS
     Route: 048
     Dates: start: 20090608, end: 20100531
  4. ARTIST [Concomitant]
     Active Substance: CARVEDILOL
     Indication: PRODUCT USED FOR UNKNOWN INDICATION
     Route: 048
  5. WARFARIN [Concomitant]
     Active Substance: WARFARIN
     Indication: LUPUS NEPHRITIS
     Route: 048
     Dates: end: 20130718
  6. TACROLIMUS. [Suspect]
     Active Substance: TACROLIMUS
     Route: 048
     Dates: start: 20100601, end: 20100819
  7. TACROLIMUS. [Suspect]
     Active Substance: TACROLIMUS
     Route: 048
     Dates: start: 20100820
  8. PREDNISOLONE. [Suspect]
     Active Substance: PREDNISOLONE
     Route: 048
     Dates: start: 20090914, end: 20100117
  9. PREDNISOLONE. [Suspect]
     Active Substance: PREDNISOLONE
     Route: 048
     Dates: start: 20100928, end: 20110131
  10. PREDNISOLONE. [Suspect]
     Active Substance: PREDNISOLONE
     Route: 048
     Dates: start: 20131217, end: 20140313
  11. PARIET [Concomitant]
     Active Substance: RABEPRAZOLE SODIUM
     Indication: PROPHYLAXIS
     Route: 048
     Dates: end: 20130718
  12. WARFARIN [Concomitant]
     Active Substance: WARFARIN
     Indication: PROPHYLAXIS
     Route: 048
     Dates: start: 20130719, end: 20131111
  13. CRAVIT [Concomitant]
     Active Substance: LEVOFLOXACIN
     Indication: CELLULITIS
     Route: 048
     Dates: start: 20130527, end: 20130605
  14. RECALBON [Concomitant]
     Active Substance: MINODRONIC ACID
     Indication: PROPHYLAXIS
     Route: 048
     Dates: start: 20130801, end: 20140313
  15. PREDNISOLONE. [Suspect]
     Active Substance: PREDNISOLONE
     Route: 048
     Dates: start: 20100118, end: 20100927
  16. PREDNISOLONE. [Suspect]
     Active Substance: PREDNISOLONE
     Route: 048
     Dates: start: 20110531, end: 20131216
  17. IMURAN [Suspect]
     Active Substance: AZATHIOPRINE
     Indication: LUPUS NEPHRITIS
     Route: 048
     Dates: start: 20120618, end: 20130331
  18. WARFARIN [Concomitant]
     Active Substance: WARFARIN
     Route: 048
     Dates: start: 20131112, end: 20140119
  19. IMURAN [Suspect]
     Active Substance: AZATHIOPRINE
     Route: 048
     Dates: start: 20140218, end: 20140414
  20. CRAVIT [Concomitant]
     Active Substance: LEVOFLOXACIN
     Indication: PHARYNGITIS
     Route: 048
     Dates: start: 20130121, end: 20130128
  21. PREDNISOLONE. [Suspect]
     Active Substance: PREDNISOLONE
     Route: 048
     Dates: start: 20140314
  22. IMURAN [Suspect]
     Active Substance: AZATHIOPRINE
     Route: 048
     Dates: start: 20130802, end: 20140217
  23. IMURAN [Suspect]
     Active Substance: AZATHIOPRINE
     Route: 048
     Dates: start: 20140415
  24. BLOPRESS [Concomitant]
     Active Substance: CANDESARTAN CILEXETIL
     Indication: PRODUCT USED FOR UNKNOWN INDICATION
     Route: 048
     Dates: end: 20131002
  25. UNISIA [Concomitant]
     Active Substance: AMLODIPINE BESYLATE\CANDESARTAN CILEXETIL
     Indication: PRODUCT USED FOR UNKNOWN INDICATION
     Route: 048
     Dates: start: 20131003, end: 20131215
  26. ORADOL                             /00093302/ [Concomitant]
     Indication: PHARYNGITIS
     Route: 048
     Dates: start: 20130121, end: 20130128
  27. PREDNISOLONE. [Suspect]
     Active Substance: PREDNISOLONE
     Route: 048
     Dates: start: 20110201, end: 20110530
  28. IMURAN [Suspect]
     Active Substance: AZATHIOPRINE
     Route: 048
     Dates: start: 20130401, end: 20130801
  29. WARFARIN [Concomitant]
     Active Substance: WARFARIN
     Route: 048
     Dates: start: 20140120, end: 20140518
  30. WARFARIN [Concomitant]
     Active Substance: WARFARIN
     Route: 048
     Dates: start: 20140519
  31. ZYLORIC [Concomitant]
     Active Substance: ALLOPURINOL
     Indication: PRODUCT USED FOR UNKNOWN INDICATION
     Route: 048
  32. ROCALTROL [Concomitant]
     Active Substance: CALCITRIOL
     Indication: PROPHYLAXIS
     Dosage: 0.5 ?G, ONCE DAILY
     Route: 048
     Dates: end: 20130731
  33. OMEPRAL                            /00661201/ [Concomitant]
     Active Substance: OMEPRAZOLE
     Indication: PROPHYLAXIS
     Route: 048
     Dates: start: 20130905
  34. UNISIA [Concomitant]
     Active Substance: AMLODIPINE BESYLATE\CANDESARTAN CILEXETIL
     Indication: PRODUCT USED FOR UNKNOWN INDICATION
     Route: 048
     Dates: start: 20131216
  35. PREDNISOLONE. [Suspect]
     Active Substance: PREDNISOLONE
     Indication: LUPUS NEPHRITIS
     Route: 048
     Dates: end: 20090913
  36. NORVASC [Concomitant]
     Active Substance: AMLODIPINE BESYLATE
     Indication: PRODUCT USED FOR UNKNOWN INDICATION
     Route: 048
     Dates: end: 20131002
  37. PARIET [Concomitant]
     Active Substance: RABEPRAZOLE SODIUM
     Route: 048
     Dates: start: 20130719, end: 20130904
  38. ROCALTROL [Concomitant]
     Active Substance: CALCITRIOL
     Indication: CHEST PAIN
     Dosage: 0.5 ?G, ONCE DAILY
     Route: 048
     Dates: start: 20110224
  39. TRANSAMIN [Concomitant]
     Active Substance: TRANEXAMIC ACID
     Indication: PHARYNGITIS
     Route: 048
     Dates: start: 20130121, end: 20130128

REACTIONS (9)
  - Tension headache [Recovering/Resolving]
  - Urticaria [Recovered/Resolved]
  - Pyrexia [Recovered/Resolved]
  - Pharyngitis [Recovering/Resolving]
  - Contusion [Recovered/Resolved]
  - Chest pain [Not Recovered/Not Resolved]
  - Erythema multiforme [Recovering/Resolving]
  - Cellulitis [Recovered/Resolved]
  - Red blood cell count decreased [Recovered/Resolved]

NARRATIVE: CASE EVENT DATE: 2008
